FAERS Safety Report 8604302-4 (Version None)
Quarter: 2012Q2

REPORT INFORMATION
  Report Type: 
  Country: None (occurrence: None)
  Receive Date: 20120423
  Receipt Date: 20090929
  Transmission Date: 20120825
  Serious: Yes (Other)
  Sender: FDA-Public Use
  Company Number: PHEH2009US12430

PATIENT
  Age: 82 Year
  Sex: Male
  Weight: 88.7 kg

DRUGS (5)
  1. EXJADE [Suspect]
     Indication: MYELODYSPLASTIC SYNDROME
     Dosage: 1625 MG, QD, ORAL
     Route: 048
     Dates: start: 20090402, end: 20090902
  2. EXJADE [Suspect]
     Indication: IRON OVERLOAD
     Dosage: 1625 MG, QD, ORAL
     Route: 048
     Dates: start: 20090402, end: 20090902
  3. CYCLOSPORINE [Concomitant]
  4. HYDROCHLOROTHIAZIDE [Concomitant]
  5. DIOVAN [Concomitant]

REACTIONS (4)
  - DRUG EFFECT DECREASED [None]
  - BLOOD UREA INCREASED [None]
  - RENAL FAILURE [None]
  - BLOOD CREATININE INCREASED [None]
